FAERS Safety Report 6932919-1 (Version None)
Quarter: 2010Q3

REPORT INFORMATION
  Report Type: 
  Country: None (occurrence: None)
  Receive Date: 20100819
  Receipt Date: 20100810
  Transmission Date: 20110219
  Serious: Yes (Other)
  Sender: FDA-Public Use
  Company Number: CI-GILEAD-2010-0031043

PATIENT
  Age: 37 Year
  Sex: Female
  Weight: 68 kg

DRUGS (17)
  1. TRUVADA [Suspect]
     Indication: HIV INFECTION
     Route: 048
     Dates: start: 20080714
  2. EFAVIRENZ [Suspect]
     Indication: HIV INFECTION
     Route: 048
     Dates: start: 20080714
  3. SULFAMETHOXAZOLE AND TRIMETHOPRIM [Suspect]
     Indication: OPPORTUNISTIC INFECTION PROPHYLAXIS
     Dates: start: 20080814
  4. ISONIAZID [Concomitant]
     Indication: OPPORTUNISTIC INFECTION PROPHYLAXIS
     Dates: start: 20080814, end: 20090226
  5. ALBENDAZOLE /MEBENNDAZOLE [Concomitant]
     Dates: start: 20080714
  6. TRICLOCARBAN /IRGASAN [Concomitant]
     Dates: start: 20080915
  7. AMOXICILLIN [Concomitant]
     Dates: start: 20081103
  8. MULTI-VITAMIN [Concomitant]
     Dates: start: 20081215
  9. ECONAZOLE /BUTOCONAZOLE [Concomitant]
     Dates: start: 20090414
  10. MICONAZOL [Concomitant]
     Dates: start: 20090429
  11. IBUPROFEN [Concomitant]
     Dates: start: 20090429
  12. PARACETAMOL W/DEXTROPROPOXYPHENE [Concomitant]
     Dates: start: 20091006
  13. FER SULFATE [Concomitant]
     Dates: start: 20091103
  14. CIPROFLOXACIN [Concomitant]
     Dates: start: 20091203
  15. CHLORPHENAMINE [Concomitant]
     Dates: start: 20100115
  16. ACETAMINOPHEN [Concomitant]
     Dates: start: 20100420
  17. PHLOROGLUCINOL [Concomitant]
     Dates: start: 20100420

REACTIONS (1)
  - ANAEMIA [None]
